FAERS Safety Report 9177744 (Version 2)
Quarter: 2013Q2

REPORT INFORMATION
  Report Type: Spontaneous
  Country: US (occurrence: None)
  Receive Date: 20120531
  Receipt Date: 20121130
  Transmission Date: 20140414
  Serious: Yes (Hospitalization, Other)
  Sender: FDA-Public Use
  Company Number: US201112006949

PATIENT
  Age: 57 Year
  Sex: Female
  Weight: 84.4 kg

DRUGS (10)
  1. BYETTA [Suspect]
     Dates: start: 200508
  2. METFORMIN [Concomitant]
  3. JANUMET (METFORMIN HYDROCHLORIDE SITAGLIPTIN PHOSPHATE MOMOHYDRATE) [Concomitant]
  4. DIOVAN (VALSARTAN) [Concomitant]
  5. WELLIBUTRIN XL (BUPROPION HYDROCHLORIDE) [Concomitant]
  6. AVANDAMET (METFORMIN HYDROCHLORIDE, ROSIGLITAZONE MALEATE) [Concomitant]
  7. AMARYL (GLIMEPIRIDE) [Concomitant]
  8. AMARYL (GLIMEPIRIDE) [Concomitant]
  9. ALTACE 9RAMIPRIL) [Concomitant]
  10. BABY ASPIRIN (ACETYLSALICYLIC ACID) [Concomitant]

REACTIONS (2)
  - Pancreatitis [None]
  - Hyperlipidaemia [None]
